FAERS Safety Report 5036947-5 (Version None)
Quarter: 2006Q2

REPORT INFORMATION
  Report Type: 
  Country: None (occurrence: None)
  Receive Date: 20060628
  Receipt Date: 20050404
  Transmission Date: 20061013
  Serious: Yes (Death, Other)
  Sender: FDA-Public Use
  Company Number: JP-AVENTIS-200510992JP

PATIENT
  Age: 53 Year
  Sex: Male
  Weight: 55.4 kg

DRUGS (12)
  1. ARAVA [Suspect]
     Indication: RHEUMATOID ARTHRITIS
     Route: 048
     Dates: start: 20040907, end: 20041209
  2. PREDONINE [Suspect]
     Indication: RHEUMATOID ARTHRITIS
     Route: 048
  3. NABOAL - SLOW RELEASE [Suspect]
     Indication: RHEUMATOID ARTHRITIS
     Route: 048
  4. MUCOSTA [Concomitant]
     Indication: GASTRITIS
     Route: 048
  5. MUCOSTA [Concomitant]
     Indication: PROPHYLAXIS
     Route: 048
  6. ZANTAC [Concomitant]
     Indication: GASTRITIS
     Route: 048
  7. ZANTAC [Concomitant]
     Indication: PROPHYLAXIS
     Route: 048
  8. FERRUM [Concomitant]
     Indication: ANAEMIA
     Route: 048
  9. FOLIAMIN [Concomitant]
     Indication: FOLATE DEFICIENCY
     Dosage: DOSE: 5 MG/WEEK
     Route: 048
     Dates: end: 20040830
  10. RHEUMATREX [Concomitant]
     Indication: RHEUMATOID ARTHRITIS
     Dosage: DOSE: 8 MG/WEEK
     Route: 048
     Dates: end: 20040827
  11. LOXONIN [Concomitant]
     Indication: RHEUMATOID ARTHRITIS
     Route: 048
  12. LASIX [Concomitant]
     Indication: POLYURIA
     Route: 048
     Dates: start: 20050330, end: 20050401

REACTIONS (12)
  - ABDOMINAL PAIN UPPER [None]
  - ANOREXIA [None]
  - CARDIAC FAILURE CONGESTIVE [None]
  - CONSTIPATION [None]
  - DIVERTICULUM INTESTINAL [None]
  - ENTEROCOLITIS HAEMORRHAGIC [None]
  - GAMMA-GLUTAMYLTRANSFERASE INCREASED [None]
  - INTERSTITIAL LUNG DISEASE [None]
  - LIVER DISORDER [None]
  - NAUSEA [None]
  - PNEUMONIA [None]
  - URINARY TRACT INFECTION [None]
